FAERS Safety Report 13021983 (Version 1)
Quarter: 2016Q4

REPORT INFORMATION
  Report Type: Spontaneous
  Country: US (occurrence: US)
  Receive Date: 20161213
  Receipt Date: 20161213
  Transmission Date: 20170207
  Serious: Yes (Hospitalization)
  Sender: FDA-Public Use
  Company Number: US-TARO PHARMACEUTICALS USA.,INC-2016SUN00509

PATIENT
  Age: 62 Year
  Sex: Male

DRUGS (1)
  1. WARFARIN [Suspect]
     Active Substance: WARFARIN
     Indication: ATRIAL FIBRILLATION
     Dosage: UNK
     Route: 065

REACTIONS (3)
  - Fall [Unknown]
  - International normalised ratio increased [Recovering/Resolving]
  - Gastrointestinal haemorrhage [Unknown]
